FAERS Safety Report 24132428 (Version 1)
Quarter: 2024Q3

REPORT INFORMATION
  Report Type: Spontaneous
  Country: US (occurrence: US)
  Receive Date: 20240724
  Receipt Date: 20240724
  Transmission Date: 20241017
  Serious: Yes (Other)
  Sender: AMGEN
  Company Number: US-AMGEN-USASP2024145225

PATIENT
  Age: 65 Year
  Sex: Male

DRUGS (1)
  1. REPATHA [Suspect]
     Active Substance: EVOLOCUMAB
     Indication: Aortic arteriosclerosis
     Dosage: 140 MILLIGRAM, Q2WK (140MG/ 2TIMES MONTHLY)
     Route: 065
     Dates: start: 202406, end: 202407

REACTIONS (1)
  - Arrhythmia [Unknown]
